FAERS Safety Report 23534996 (Version 3)
Quarter: 2025Q3

REPORT INFORMATION
  Report Type: Report from Study
  Country: US (occurrence: US)
  Receive Date: 20240217
  Receipt Date: 20250816
  Transmission Date: 20251020
  Serious: No
  Sender: ALEXION PHARMACEUTICALS
  Company Number: US-AstraZeneca-CH-00565997A

PATIENT
  Age: 45 Year
  Sex: Female

DRUGS (1)
  1. ULTOMIRIS [Suspect]
     Active Substance: RAVULIZUMAB-CWVZ
     Indication: Atypical haemolytic uraemic syndrome

REACTIONS (8)
  - Nasopharyngitis [Recovered/Resolved]
  - Malaise [Unknown]
  - Fall [Unknown]
  - Mental disorder [Unknown]
  - Impatience [Unknown]
  - Stress [Unknown]
  - Depression [Unknown]
  - Cough [Recovered/Resolved]

NARRATIVE: CASE EVENT DATE: 20240104
